FAERS Safety Report 5869625-0 (Version None)
Quarter: 2008Q3

REPORT INFORMATION
  Report Type: 
  Country: None (occurrence: None)
  Receive Date: 20080904
  Receipt Date: 20080313
  Transmission Date: 20090109
  Serious: No
  Sender: FDA-Public Use
  Company Number: US-KINGPHARMUSA00001-K200800315

PATIENT

DRUGS (5)
  1. CYTOMEL [Suspect]
     Indication: HYPOTHYROIDISM
     Dosage: 25 MCG, QD
     Route: 048
     Dates: start: 20020101
  2. CYTOMEL [Suspect]
     Indication: ASTHENIA
     Dosage: 12.5 MCG, QD
     Route: 048
  3. CYTOMEL [Suspect]
     Indication: EXERCISE TOLERANCE DECREASED
     Dosage: 5 MCG, QD
     Route: 048
     Dates: start: 20080325, end: 20050327
  4. CYTOMEL [Suspect]
     Indication: AFFECTIVE DISORDER
     Dosage: UNK, QD
     Route: 048
     Dates: start: 20020101
  5. THYROID PREPARATIONS [Suspect]
     Indication: HYPOTHYROIDISM
     Dosage: 25 MCG, QD
     Route: 048

REACTIONS (8)
  - ARTHRALGIA [None]
  - DRUG INEFFECTIVE [None]
  - FATIGUE [None]
  - HEART RATE IRREGULAR [None]
  - INSOMNIA [None]
  - PAIN IN EXTREMITY [None]
  - PALPITATIONS [None]
  - SUPRAVENTRICULAR EXTRASYSTOLES [None]
